FAERS Safety Report 4907042-8 (Version None)
Quarter: 2006Q1

REPORT INFORMATION
  Report Type: 
  Country: None (occurrence: None)
  Receive Date: 20060203
  Receipt Date: 20060124
  Transmission Date: 20060701
  Serious: Yes (Death, Hospitalization)
  Sender: FDA-Public Use
  Company Number: HQWYE634314JAN05

PATIENT
  Age: 32 Year
  Sex: Male
  Weight: 77.18 kg

DRUGS (4)
  1. EFFEXOR XR [Suspect]
     Indication: DEPRESSION
     Dosage: 75 MG 1X PER 1 DAY, ORAL
     Route: 048
     Dates: start: 20040822, end: 20040922
  2. ATIVAN [Concomitant]
  3. KLONOPIN [Concomitant]
  4. LEXAPRO [Concomitant]

REACTIONS (11)
  - COMPLETED SUICIDE [None]
  - EXCORIATION [None]
  - FEELING ABNORMAL [None]
  - HEADACHE [None]
  - INJURY ASPHYXIATION [None]
  - INSOMNIA [None]
  - MALAISE [None]
  - MENTAL STATUS CHANGES [None]
  - NIGHTMARE [None]
  - PULMONARY CONGESTION [None]
  - SUICIDAL IDEATION [None]
